FAERS Safety Report 5039731-1 (Version None)
Quarter: 2006Q2

REPORT INFORMATION
  Report Type: 
  Country: None (occurrence: None)
  Receive Date: 20060601
  Receipt Date: 20060119
  Transmission Date: 20061013
  Serious: No
  Sender: FDA-Public Use
  Company Number: 2006PV007337

PATIENT
  Age: 67 Year
  Sex: Female
  Weight: 88.4514 kg

DRUGS (3)
  1. BYETTA [Suspect]
     Indication: DIABETES MELLITUS NON-INSULIN-DEPENDENT
     Dosage: 10 MCG;BID;SC
     Route: 058
  2. ACTOS [Concomitant]
  3. AMARYL [Concomitant]

REACTIONS (2)
  - ABDOMINAL PAIN UPPER [None]
  - DIARRHOEA [None]
